FAERS Safety Report 9140948 (Version 2)
Quarter: 2013Q2

REPORT INFORMATION
  Report Type: Spontaneous
  Country: FR (occurrence: FR)
  Receive Date: 20130305
  Receipt Date: 20130619
  Transmission Date: 20140414
  Serious: Yes (Other)
  Sender: FDA-Public Use
  Company Number: FR-PFIZER INC-2013072861

PATIENT
  Age: 74 Year
  Sex: Female

DRUGS (8)
  1. SOLU-MEDROL [Suspect]
     Indication: PREMEDICATION
     Dosage: 60 MG ON DAY 0
     Route: 042
     Dates: start: 20121025, end: 20130111
  2. CARBOPLATIN [Suspect]
     Indication: NON-SMALL CELL LUNG CANCER METASTATIC
     Dosage: VARIABLE
     Route: 042
     Dates: start: 20121025, end: 20130111
  3. ONDANSETRON HCL [Suspect]
     Indication: PREMEDICATION
     Dosage: 8 MG ON DAY 0
     Route: 042
     Dates: start: 20121025, end: 20130111
  4. ALIMTA [Suspect]
     Indication: NON-SMALL CELL LUNG CANCER METASTATIC
     Dosage: VARIABLE
     Route: 042
     Dates: start: 20121025, end: 20130111
  5. SOLUPRED [Suspect]
     Indication: PREMEDICATION
     Dosage: 25 MG IN THE MORNING AND IN THE EVENING ON D-1, D0 AND D+1 (ACCORDING TO THE CYCLE)
     Route: 048
     Dates: start: 20121024, end: 20130112
  6. DODECAVIT [Suspect]
     Dosage: 1 MG EVERY 9 WEEKS
     Route: 030
     Dates: start: 20121025
  7. SPECIAFOLDINE [Suspect]
     Dosage: 1 DOSAGE FORM (0.4 MG TABLET) 1X/DAY
     Route: 048
     Dates: start: 20121020
  8. SPECIAFOLDINE [Suspect]
     Dosage: 4 DOSAGE FORMS (5 MG TABLET) ON SATURDAYS EVERY WEEK
     Route: 048
     Dates: start: 20121020

REACTIONS (4)
  - Cholestasis [Not Recovered/Not Resolved]
  - Blood alkaline phosphatase increased [Not Recovered/Not Resolved]
  - Gamma-glutamyltransferase increased [Not Recovered/Not Resolved]
  - Transaminases increased [Recovered/Resolved]
